FAERS Safety Report 18545382 (Version 1)
Quarter: 2020Q4

REPORT INFORMATION
  Report Type: Spontaneous
  Country: US (occurrence: US)
  Receive Date: 20201125
  Receipt Date: 20201125
  Transmission Date: 20210114
  Serious: No
  Sender: FDA-Public Use
  Company Number: US-TAKEDA-2020TUS050420

PATIENT
  Sex: Female
  Weight: 61.22 kg

DRUGS (10)
  1. DIPHENHYDRAMINE. [Concomitant]
     Active Substance: DIPHENHYDRAMINE
  2. EPINEPHRINE. [Concomitant]
     Active Substance: EPINEPHRINE
  3. GAMMAGARD LIQUID [Suspect]
     Active Substance: HUMAN IMMUNOGLOBULIN G
     Indication: IMMUNODEFICIENCY COMMON VARIABLE
     Dosage: 14 GRAM, Q2WEEKS
     Route: 058
     Dates: start: 20200517
  4. LEVORA [LEVOFLOXACIN] [Concomitant]
  5. SYMBICORT [Concomitant]
     Active Substance: BUDESONIDE\FORMOTEROL FUMARATE DIHYDRATE
  6. ALBUTEROL [SALBUTAMOL] [Concomitant]
     Active Substance: ALBUTEROL
  7. LAMICTAL [Concomitant]
     Active Substance: LAMOTRIGINE
  8. ACETAMINOPHEN. [Concomitant]
     Active Substance: ACETAMINOPHEN
  9. VITAMIN D2 [Concomitant]
     Active Substance: ERGOCALCIFEROL
  10. LIDOCAINE. [Concomitant]
     Active Substance: LIDOCAINE

REACTIONS (2)
  - No adverse event [Unknown]
  - Exposure during pregnancy [Unknown]
